FAERS Safety Report 14288869 (Version 2)
Quarter: 2017Q4

REPORT INFORMATION
  Report Type: Spontaneous
  Country: FR (occurrence: FR)
  Receive Date: 20171215
  Receipt Date: 20171220
  Transmission Date: 20180321
  Serious: Yes (Other)
  Sender: FDA-Public Use
  Company Number: FR-009507513-1712FRA002871

PATIENT
  Sex: Male

DRUGS (2)
  1. FINASTERIDE. [Suspect]
     Active Substance: FINASTERIDE
  2. PROPECIA [Suspect]
     Active Substance: FINASTERIDE
     Route: 048

REACTIONS (7)
  - Cognitive disorder [Unknown]
  - Suicide attempt [Unknown]
  - Physical disability [Unknown]
  - Insomnia [Unknown]
  - Sexual dysfunction [Unknown]
  - Asthenia [Unknown]
  - Abnormal behaviour [Unknown]
